FAERS Safety Report 7323302-8 (Version None)
Quarter: 2011Q1

REPORT INFORMATION
  Report Type: 
  Country: None (occurrence: None)
  Receive Date: 20110217
  Receipt Date: 20110204
  Transmission Date: 20110831
  Serious: Yes (Other)
  Sender: FDA-Public Use
  Company Number: 2011000669

PATIENT
  Age: 64 Year
  Sex: Male

DRUGS (1)
  1. ERLOTINIB (ERLOTINIB) (TABLET) (ERLOTINIB) [Suspect]
     Indication: LUNG ADENOCARCINOMA
     Dosage: (150 MG,1 X PER 1 DAY),ORAL
     Route: 048
     Dates: start: 20090610, end: 20090629

REACTIONS (6)
  - PLATELET COUNT DECREASED [None]
  - RASH [None]
  - LYMPHOCYTE COUNT INCREASED [None]
  - RED BLOOD CELL COUNT DECREASED [None]
  - PNEUMOTHORAX [None]
  - HAEMOGLOBIN DECREASED [None]
